FAERS Safety Report 10245070 (Version 1)
Quarter: 2014Q2

REPORT INFORMATION
  Report Type: Spontaneous
  Country: GB (occurrence: None)
  Receive Date: 20140616
  Receipt Date: 20140616
  Transmission Date: 20141212
  Serious: Yes (Other)
  Sender: FDA-Public Use
  Company Number: AUR-APL-2014-06328

PATIENT
  Age: 72 Year
  Sex: Female
  Weight: 53 kg

DRUGS (4)
  1. ALENDRONIC ACID [Suspect]
     Indication: PRODUCT USED FOR UNKNOWN INDICATION
     Dates: start: 20140127
  2. ADALAT (NIFEDIPINE) [Concomitant]
  3. ADCAL (CARBAZOCHROME) [Concomitant]
  4. PARACETAMOL [Concomitant]

REACTIONS (2)
  - Depression [None]
  - Depressed mood [None]
